FAERS Safety Report 6991373-4 (Version None)
Quarter: 2010Q3

REPORT INFORMATION
  Report Type: 
  Country: None (occurrence: None)
  Receive Date: 20100916
  Receipt Date: 20090820
  Transmission Date: 20110219
  Serious: No
  Sender: FDA-Public Use
  Company Number: US-WYE-H10674909

PATIENT
  Sex: Female
  Weight: 139.38 kg

DRUGS (7)
  1. PRISTIQ [Suspect]
     Indication: MAJOR DEPRESSION
     Route: 048
     Dates: start: 20090722, end: 20090725
  2. ARTHROTEC [Concomitant]
     Indication: ARTHRITIS
     Dosage: 75/200 MG, TWICE DAILY
     Route: 048
     Dates: start: 20050101
  3. TYLENOL W/ CODEINE [Concomitant]
     Indication: PAIN
     Dosage: 300/30 MG, 1 TO 2 EVERY 4 TO 6 HOURS
     Route: 048
     Dates: start: 20030101
  4. HYDROCHLOROTHIAZIDE [Concomitant]
     Indication: HYPERTENSION
     Route: 048
     Dates: start: 20030101
  5. COZAAR [Concomitant]
     Indication: HYPERTENSION
     Route: 048
     Dates: start: 20030101
  6. SYNTHROID [Concomitant]
     Indication: HYPOTHYROIDISM
     Route: 048
     Dates: start: 20040101
  7. PREMPRO [Concomitant]
     Indication: MENOPAUSE
     Dosage: 0.625/2.5 MG DAILY
     Route: 048
     Dates: start: 20040101

REACTIONS (2)
  - CRYING [None]
  - NIGHTMARE [None]
